FAERS Safety Report 5514145-6 (Version None)
Quarter: 2007Q4

REPORT INFORMATION
  Report Type: 
  Country: None (occurrence: None)
  Receive Date: 20071106
  Receipt Date: 20061214
  Transmission Date: 20080405
  Serious: Yes (Other)
  Sender: FDA-Public Use
  Company Number: US200612002776

PATIENT
  Sex: Male

DRUGS (1)
  1. PROZAC [Suspect]
     Indication: BIPOLAR I DISORDER

REACTIONS (1)
  - SUICIDAL IDEATION [None]
